FAERS Safety Report 17192004 (Version 1)
Quarter: 2019Q4

REPORT INFORMATION
  Report Type: Spontaneous
  Country: ES (occurrence: ES)
  Receive Date: 20191223
  Receipt Date: 20191223
  Transmission Date: 20200122
  Serious: Yes (Other)
  Sender: FDA-Public Use
  Company Number: ES-JNJFOC-20191226658

PATIENT
  Age: 6 Decade
  Sex: Male

DRUGS (4)
  1. DARUNAVIR/COBICISTAT [Suspect]
     Active Substance: COBICISTAT\DARUNAVIR ETHANOLATE
     Indication: HIV INFECTION
     Dosage: 800/150 MG
     Route: 048
  2. RITONAVIR. [Suspect]
     Active Substance: RITONAVIR
     Indication: HIV INFECTION
     Route: 048
     Dates: start: 201510, end: 2017
  3. LEDIPASVIR W/SOFOSBUVIR [Concomitant]
     Active Substance: LEDIPASVIR\SOFOSBUVIR
     Indication: HEPATITIS C
  4. DARUNAVIR [Suspect]
     Active Substance: DARUNAVIR
     Indication: HIV INFECTION
     Route: 048
     Dates: start: 201510, end: 2017

REACTIONS (3)
  - Dyslipidaemia [Unknown]
  - Myocardial infarction [Unknown]
  - Overdose [Unknown]

NARRATIVE: CASE EVENT DATE: 201510
